FAERS Safety Report 16071447 (Version 1)
Quarter: 2019Q1

REPORT INFORMATION
  Report Type: Spontaneous
  Country: US (occurrence: US)
  Receive Date: 20190213
  Receipt Date: 20190213
  Transmission Date: 20190418
  Serious: Yes (Hospitalization)
  Sender: FDA-Public Use
  Company Number: None

PATIENT
  Sex: Male

DRUGS (8)
  1. LATANOPROST SOL 0.005% [Concomitant]
  2. VIT D3/VIT C CAP 1000-500 [Concomitant]
  3. LUCENTIS [Suspect]
     Active Substance: RANIBIZUMAB
     Indication: RETINAL VEIN OCCLUSION
     Dosage: OTHER DOSE:0.5 MG;OTHER FREQUENCY:EVERY 28 DAYS;?
     Route: 042
     Dates: start: 201611
  4. PREDINSONE PAK 5MG [Concomitant]
  5. ASPIRIN 81MG [Concomitant]
     Active Substance: ASPIRIN
  6. PREDNISONE TAB 2.5MG [Concomitant]
  7. LUCENTIS [Suspect]
     Active Substance: RANIBIZUMAB
     Indication: MACULAR OEDEMA
     Dosage: OTHER DOSE:0.5 MG;OTHER FREQUENCY:EVERY 28 DAYS;?
     Route: 042
     Dates: start: 201611
  8. FLOMAX [Concomitant]
     Active Substance: TAMSULOSIN HYDROCHLORIDE

REACTIONS (2)
  - Fall [None]
  - Hip fracture [None]
